FAERS Safety Report 4789922-X (Version None)
Quarter: 2005Q4

REPORT INFORMATION
  Report Type: 
  Country: None (occurrence: None)
  Receive Date: 20051006
  Receipt Date: 20050419
  Transmission Date: 20060501
  Serious: Yes (Hospitalization, Other)
  Sender: FDA-Public Use
  Company Number: US-MERCK-0504USA03720

PATIENT
  Age: 63 Year
  Sex: Male
  Weight: 100 kg

DRUGS (5)
  1. VIOXX [Suspect]
     Indication: RHEUMATOID ARTHRITIS
     Route: 048
     Dates: start: 20000101, end: 20040901
  2. ASPIRIN [Concomitant]
     Route: 048
     Dates: start: 19971123, end: 20030823
  3. TYLENOL (CAPLET) [Concomitant]
     Indication: ANALGESIC EFFECT
     Route: 048
     Dates: start: 19971123
  4. VASOTEC [Concomitant]
     Indication: BLOOD PRESSURE
     Route: 048
     Dates: start: 19970904
  5. VASOTEC [Concomitant]
     Indication: CARDIOMEGALY
     Route: 048
     Dates: start: 19970904

REACTIONS (8)
  - BLADDER DISORDER [None]
  - CARDIAC MURMUR [None]
  - CARDIAC VALVE DISEASE [None]
  - CEREBROVASCULAR ACCIDENT [None]
  - DEPRESSION [None]
  - DIABETIC COMPLICATION [None]
  - HYPERSENSITIVITY [None]
  - SLEEP APNOEA SYNDROME [None]
